FAERS Safety Report 6922422-7 (Version None)
Quarter: 2010Q3

REPORT INFORMATION
  Report Type: 
  Country: None (occurrence: None)
  Receive Date: 20100813
  Receipt Date: 20100805
  Transmission Date: 20110219
  Serious: Yes (Other)
  Sender: FDA-Public Use
  Company Number: GB-JNJFOC-20100500582

PATIENT
  Age: 14 Year
  Sex: Female

DRUGS (1)
  1. RISPERDAL [Suspect]
     Indication: DEPRESSION
     Route: 065

REACTIONS (4)
  - DEPRESSION [None]
  - SELF INJURIOUS BEHAVIOUR [None]
  - WEIGHT DECREASED [None]
  - WEIGHT INCREASED [None]
